FAERS Safety Report 8597987-2 (Version None)
Quarter: 2012Q3

REPORT INFORMATION
  Report Type: 
  Country: None (occurrence: None)
  Receive Date: 20120816
  Receipt Date: 20120806
  Transmission Date: 20120928
  Serious: Yes (Other)
  Sender: FDA-Public Use
  Company Number: AR-GENZYME-CERZ-1002482

PATIENT
  Sex: Female
  Weight: 48 kg

DRUGS (1)
  1. CEREZYME [Suspect]
     Indication: GAUCHER'S DISEASE
     Dosage: 54.2 U/KG, Q2W
     Route: 042

REACTIONS (5)
  - GAUCHER'S DISEASE [None]
  - NON-HODGKIN'S LYMPHOMA [None]
  - ANAEMIA [None]
  - THROMBOCYTOPENIA [None]
  - LEUKOPENIA [None]
